FAERS Safety Report 4709062-5 (Version None)
Quarter: 2005Q3

REPORT INFORMATION
  Report Type: 
  Country: None (occurrence: None)
  Receive Date: 20050707
  Receipt Date: 20050624
  Transmission Date: 20060218
  Serious: Yes (Other)
  Sender: FDA-Public Use
  Company Number: 2005BH000422

PATIENT
  Age: 58 Year
  Sex: Female
  Weight: 181 kg

DRUGS (1)
  1. DOBUTAMINE HCL IN 5% DEXTROSE [Suspect]
     Indication: CARDIAC STRESS TEST
     Dosage: IV
     Route: 042
     Dates: start: 20050624, end: 20050624

REACTIONS (3)
  - CONVULSION [None]
  - LOSS OF CONSCIOUSNESS [None]
  - TREMOR [None]
